FAERS Safety Report 9508994 (Version 1)
Quarter: 2013Q3

REPORT INFORMATION
  Report Type: Spontaneous
  Country: US (occurrence: US)
  Receive Date: 20130909
  Receipt Date: 20130909
  Transmission Date: 20140515
  Serious: No
  Sender: FDA-Public Use
  Company Number: US-BRISTOL-MYERS SQUIBB COMPANY-17388398

PATIENT
  Age: 4 Decade
  Sex: Female

DRUGS (2)
  1. ABILIFY [Suspect]
     Indication: BIPOLAR DISORDER
     Dosage: 2.5MG DOSE REDUCED
  2. LITHIUM [Suspect]
     Indication: BIPOLAR DISORDER

REACTIONS (4)
  - Malaise [Unknown]
  - Hypersensitivity [Unknown]
  - Cogwheel rigidity [Unknown]
  - Salivary hypersecretion [Unknown]
